FAERS Safety Report 8837439 (Version 1)
Quarter: 2012Q4

REPORT INFORMATION
  Report Type: 
  Country: GB (occurrence: GB)
  Receive Date: 20121012
  Receipt Date: 20121012
  Transmission Date: 20130627
  Serious: Yes (Other)
  Sender: FDA-Public Use
  Company Number: GB-MILLENNIUM PHARMACEUTICALS, INC.-2012-06981

PATIENT

DRUGS (1)
  1. VELCADE [Suspect]
     Indication: AMYLOIDOSIS
     Route: 058

REACTIONS (2)
  - Thrombosis [Unknown]
  - Off label use [Unknown]
